FAERS Safety Report 4332854-1 (Version None)
Quarter: 2004Q1

REPORT INFORMATION
  Report Type: 
  Country: None (occurrence: None)
  Receive Date: 20040330
  Receipt Date: 20040315
  Transmission Date: 20041129
  Serious: Yes (Death)
  Sender: FDA-Public Use
  Company Number: US-JNJFOC-20030905147

PATIENT
  Age: 8 Decade
  Sex: Male

DRUGS (2)
  1. REMICADE [Suspect]
     Indication: CROHN'S DISEASE
     Dosage: 3 MG/KG, INTRAVENOUS
     Route: 042
     Dates: start: 20030919
  2. REMICADE [Suspect]
     Indication: RHEUMATOID ARTHRITIS
     Dosage: 3 MG/KG, INTRAVENOUS
     Route: 042
     Dates: start: 20030919

REACTIONS (6)
  - ARRHYTHMIA [None]
  - CARDIOMEGALY [None]
  - COMA [None]
  - CORONARY ARTERY OCCLUSION [None]
  - HYPERTENSIVE HEART DISEASE [None]
  - PROCEDURAL COMPLICATION [None]
